FAERS Safety Report 7110363-4 (Version None)
Quarter: 2010Q4

REPORT INFORMATION
  Report Type: 
  Country: None (occurrence: None)
  Receive Date: 20101118
  Receipt Date: 20101110
  Transmission Date: 20110411
  Serious: No
  Sender: FDA-Public Use
  Company Number: US-PFIZER INC-2010145174

PATIENT
  Sex: Female
  Weight: 78.9 kg

DRUGS (5)
  1. LYRICA [Suspect]
     Indication: NEUROPATHY PERIPHERAL
     Dosage: 75 MG, 2X/DAY
     Route: 048
     Dates: start: 20101029, end: 20101102
  2. SIMVASTATIN [Concomitant]
     Indication: BLOOD CHOLESTEROL INCREASED
     Dosage: UNK
  3. HYDROCHLOROTHIAZIDE [Concomitant]
     Indication: HYPERTENSION
     Dosage: UNK
  4. MELOXICAM [Concomitant]
     Indication: ARTHRITIS
     Dosage: UNK
  5. MONTELUKAST [Concomitant]
     Indication: ASTHMA
     Dosage: UNK

REACTIONS (1)
  - OEDEMA PERIPHERAL [None]
